FAERS Safety Report 6241590-6 (Version None)
Quarter: 2009Q2

REPORT INFORMATION
  Report Type: 
  Country: None (occurrence: None)
  Receive Date: 20090623
  Receipt Date: 20050601
  Transmission Date: 20091009
  Serious: Yes (Hospitalization)
  Sender: FDA-Public Use
  Company Number: ES-ROCHE-385240

PATIENT
  Sex: Male
  Weight: 66.2 kg

DRUGS (38)
  1. DACLIZUMAB [Suspect]
     Route: 042
     Dates: start: 20041018, end: 20041018
  2. DACLIZUMAB [Suspect]
     Dosage: FORM: VIALS
     Route: 042
     Dates: start: 20041027, end: 20041218
  3. MYCOPHENOLATE MOFETIL [Suspect]
     Route: 048
     Dates: start: 20041018
  4. MYCOPHENOLATE MOFETIL [Suspect]
     Route: 048
     Dates: start: 20041115
  5. MYCOPHENOLATE MOFETIL [Suspect]
     Route: 048
     Dates: start: 20041209
  6. MYCOPHENOLATE MOFETIL [Suspect]
     Route: 048
     Dates: start: 20050110
  7. MYCOPHENOLATE MOFETIL [Suspect]
     Route: 048
     Dates: start: 20050606
  8. MYCOPHENOLATE MOFETIL [Suspect]
     Route: 048
     Dates: start: 20051108
  9. MYCOPHENOLATE MOFETIL [Suspect]
     Route: 048
     Dates: start: 20060510
  10. MYCOPHENOLATE MOFETIL [Suspect]
     Route: 048
     Dates: start: 20070719
  11. TACROLIMUS [Suspect]
     Route: 048
     Dates: start: 20041018, end: 20041018
  12. TACROLIMUS [Suspect]
     Route: 048
     Dates: start: 20041019
  13. TACROLIMUS [Suspect]
     Route: 048
     Dates: start: 20060510
  14. TACROLIMUS [Suspect]
     Route: 048
     Dates: start: 20070419
  15. TACROLIMUS [Suspect]
     Route: 048
     Dates: start: 20070905
  16. STEROID NOS [Suspect]
     Dosage: DRUG: STEROIDS; FORM REPORTED AS VIAL.
     Route: 042
     Dates: start: 20041018, end: 20041018
  17. STEROID NOS [Suspect]
     Route: 042
     Dates: start: 20041019, end: 20041019
  18. STEROID NOS [Suspect]
     Dosage: DRUG: STEROIDS
     Route: 048
     Dates: start: 20041020
  19. PREDNISONE [Suspect]
     Route: 048
     Dates: start: 20041019
  20. OMEPRAZOL [Concomitant]
     Route: 048
     Dates: start: 20041019
  21. SEPTRIN [Concomitant]
     Dosage: DOSE REPORTED AS 80/400 DAILY.
     Route: 048
     Dates: start: 20041019
  22. ATENOLOL [Concomitant]
     Route: 048
     Dates: start: 20041024
  23. COTRIMOXAZOLE [Concomitant]
     Route: 048
     Dates: start: 20041019, end: 20050606
  24. ATORVASTATIN CALCIUM [Concomitant]
     Route: 048
     Dates: start: 20041202
  25. AMOXICILLIN AND CLAVULANATE POTASSIUM [Concomitant]
     Dosage: DRUG: AMOXICLAVULANIC ACID; FORM: VIAL
     Route: 042
     Dates: start: 20041022
  26. AMOXICILLIN AND CLAVULANATE POTASSIUM [Concomitant]
     Dosage: DRUG: AMOXICLAVULANIC ACID
     Route: 048
     Dates: start: 20041030, end: 20041110
  27. AMOXICILLIN AND CLAVULANATE POTASSIUM [Concomitant]
     Route: 048
     Dates: start: 20050203
  28. AMOXICILLIN AND CLAVULANATE POTASSIUM [Concomitant]
     Route: 048
     Dates: start: 20050804, end: 20050811
  29. AMOXICILLIN AND CLAVULANATE POTASSIUM [Concomitant]
     Dosage: DRUG: AMOXICLAVULANIC ACID
     Route: 048
     Dates: end: 20050216
  30. CEFUROXIME [Concomitant]
     Route: 048
     Dates: start: 20050117, end: 20050121
  31. CEFUROXIME [Concomitant]
     Route: 048
     Dates: start: 20050222, end: 20050329
  32. CEFAZOLIN [Concomitant]
     Dosage: DRUG: CEPHAZOLINE; FORM: VIAL
     Route: 042
     Dates: start: 20041018
  33. CIPROFLOXACIN HCL [Concomitant]
     Dosage: FORM: VIAL
     Route: 042
     Dates: start: 20041115
  34. CIPROFLOXACIN HCL [Concomitant]
     Route: 048
     Dates: start: 20041117, end: 20041121
  35. DARBEPOETIN ALFA [Concomitant]
     Dosage: DRUG: DARBOEPOETINE; FORM: VIAL
     Route: 058
     Dates: start: 20041022, end: 20041103
  36. LEVOFLOXACIN [Concomitant]
     Route: 048
     Dates: start: 20041208, end: 20041223
  37. MEROPENEM [Concomitant]
     Dosage: FORM: VIAL
     Route: 042
     Dates: start: 20050108, end: 20050117
  38. VALGANCICLOVIR HCL [Concomitant]
     Route: 048
     Dates: start: 20050112, end: 20050119

REACTIONS (8)
  - CYTOMEGALOVIRUS INFECTION [None]
  - ESCHERICHIA URINARY TRACT INFECTION [None]
  - HEMIPARESIS [None]
  - ISCHAEMIC CEREBRAL INFARCTION [None]
  - ISCHAEMIC STROKE [None]
  - URETERAL NECROSIS [None]
  - URINARY FISTULA [None]
  - URINARY TRACT INFECTION [None]
